FAERS Safety Report 23701997 (Version 1)
Quarter: 2024Q2

REPORT INFORMATION
  Report Type: Spontaneous
  Country: US (occurrence: None)
  Receive Date: 20240402
  Receipt Date: 20240402
  Transmission Date: 20240716
  Serious: No
  Sender: FDA-Public Use
  Company Number: None

PATIENT
  Sex: Female

DRUGS (11)
  1. ORENCIA [Suspect]
     Active Substance: ABATACEPT
     Indication: Rheumatoid arthritis
     Route: 058
     Dates: start: 20150606
  2. ALBUTEROL [Concomitant]
     Active Substance: ALBUTEROL
  3. BUPROPION [Concomitant]
     Active Substance: BUPROPION
  4. CALCIUM CIT [Concomitant]
  5. CARISOPRODOL [Concomitant]
  6. DICYCLOMINE [Concomitant]
     Active Substance: DICYCLOMINE HYDROCHLORIDE
  7. DILTIAZEM [Concomitant]
  8. ENULOSE SOL [Concomitant]
  9. FAMOTIDINE [Concomitant]
  10. GABAPENTIN [Concomitant]
     Active Substance: GABAPENTIN
  11. IBUPROFEN [Concomitant]

REACTIONS (4)
  - Road traffic accident [None]
  - Therapy interrupted [None]
  - Rheumatoid arthritis [None]
  - Loss of personal independence in daily activities [None]
